FAERS Safety Report 12308767 (Version 1)
Quarter: 2016Q2

REPORT INFORMATION
  Report Type: Spontaneous
  Country: US (occurrence: US)
  Receive Date: 20160427
  Receipt Date: 20160427
  Transmission Date: 20160815
  Serious: No
  Sender: FDA-Public Use
  Company Number: US-HOSPIRA-2977800

PATIENT
  Age: 19 Year
  Sex: Female
  Weight: 63.8 kg

DRUGS (2)
  1. MARCAINE [Suspect]
     Active Substance: BUPIVACAINE HYDROCHLORIDE
     Indication: UTERINE DILATION AND CURETTAGE
     Dosage: 1.1 ML
     Route: 024
     Dates: start: 20150812
  2. FENTANYL CITRATE. [Suspect]
     Active Substance: FENTANYL CITRATE
     Indication: UTERINE DILATION AND CURETTAGE
     Route: 024
     Dates: start: 20150812

REACTIONS (2)
  - Drug effect decreased [Unknown]
  - Drug ineffective [Unknown]

NARRATIVE: CASE EVENT DATE: 20150812
